FAERS Safety Report 12502285 (Version 1)
Quarter: 2016Q2

REPORT INFORMATION
  Report Type: Spontaneous
  Country: US (occurrence: US)
  Receive Date: 20160627
  Receipt Date: 20160627
  Transmission Date: 20160815
  Serious: Yes (Hospitalization, Other)
  Sender: FDA-Public Use
  Company Number: US-TAKEDA-2016TUS010630

PATIENT
  Age: 67 Year
  Sex: Male

DRUGS (9)
  1. COPAXONE [Concomitant]
     Active Substance: GLATIRAMER ACETATE
     Dosage: UNK
     Dates: start: 20160401
  2. PRILOSEC [Interacting]
     Active Substance: OMEPRAZOLE MAGNESIUM
     Indication: PRODUCT USED FOR UNKNOWN INDICATION
     Dosage: UNK
     Route: 065
  3. COLCHICINE. [Suspect]
     Active Substance: COLCHICINE
     Indication: MYOCARDITIS
     Dosage: UNK
     Route: 065
  4. CITALOPRAM [Interacting]
     Active Substance: CITALOPRAM HYDROBROMIDE
     Indication: PRODUCT USED FOR UNKNOWN INDICATION
     Dosage: UNK
     Route: 065
  5. TECFIDERA [Interacting]
     Active Substance: DIMETHYL FUMARATE
     Indication: MULTIPLE SCLEROSIS
     Dosage: UNK
     Route: 048
     Dates: end: 2016
  6. REBIF [Concomitant]
     Active Substance: INTERFERON BETA-1A
     Dosage: UNK
     Dates: start: 201512
  7. GABAPENTIN. [Concomitant]
     Active Substance: GABAPENTIN
     Dosage: UNK
  8. AMPYRA [Suspect]
     Active Substance: DALFAMPRIDINE
     Dosage: 10 MG, BID
     Route: 048
     Dates: start: 20150309
  9. AMPYRA [Suspect]
     Active Substance: DALFAMPRIDINE
     Indication: GAIT DISTURBANCE
     Dosage: 10 MG, BID
     Route: 048

REACTIONS (11)
  - Off label use [Recovered/Resolved]
  - Drug interaction [Unknown]
  - Laboratory test abnormal [Unknown]
  - Platelet count decreased [Not Recovered/Not Resolved]
  - Diarrhoea [Unknown]
  - Weight decreased [Recovered/Resolved]
  - Anaemia [Not Recovered/Not Resolved]
  - Myocardial infarction [Recovered/Resolved]
  - Cardiac valve disease [Recovered/Resolved]
  - Cardiac disorder [Unknown]
  - White blood cell count decreased [Not Recovered/Not Resolved]

NARRATIVE: CASE EVENT DATE: 201512
